FAERS Safety Report 15498187 (Version 6)
Quarter: 2019Q4

REPORT INFORMATION
  Report Type: Report from Study
  Country: US (occurrence: US)
  Receive Date: 20181015
  Receipt Date: 20191023
  Transmission Date: 20200122
  Serious: Yes (Other)
  Sender: FDA-Public Use
  Company Number: US-AMGEN INC.-USASP2018141070

PATIENT
  Age: 39 Year
  Sex: Female

DRUGS (2)
  1. AIMOVIG [Suspect]
     Active Substance: ERENUMAB-AOOE
     Dosage: 210 MILLIGRAM, QMO, (140 MG DOSE AT THE START OF THE MONTH AND 70 MG AT THE START OF THE THIRD WEEK)
     Route: 058
     Dates: start: 201909
  2. AIMOVIG [Suspect]
     Active Substance: ERENUMAB-AOOE
     Indication: MIGRAINE
     Dosage: 140 MILLIGRAM, QMO
     Route: 058
     Dates: start: 20180628

REACTIONS (7)
  - Intentional product misuse [Unknown]
  - Off label use [Unknown]
  - Adverse event [Unknown]
  - Intervertebral disc protrusion [Unknown]
  - Crying [Unknown]
  - Therapeutic product effect incomplete [Unknown]
  - Migraine [Recovering/Resolving]

NARRATIVE: CASE EVENT DATE: 2018
